FAERS Safety Report 6426953-8 (Version None)
Quarter: 2009Q4

REPORT INFORMATION
  Report Type: 
  Country: None (occurrence: None)
  Receive Date: 20091104
  Receipt Date: 20091028
  Transmission Date: 20100525
  Serious: Yes (Hospitalization, Other)
  Sender: FDA-Public Use
  Company Number: AU-NOVOPROD-300087

PATIENT
  Sex: Male

DRUGS (3)
  1. ACTRAPID PENFILL [Suspect]
     Indication: TYPE 1 DIABETES MELLITUS
     Dosage: 6 IU, QD
     Route: 058
  2. MIXTARD 50/50 PENFILL [Suspect]
     Indication: TYPE 1 DIABETES MELLITUS
     Dosage: 23-26 IU, QD
     Route: 058
  3. PROTAPHANE PENFILL [Suspect]
     Indication: TYPE 1 DIABETES MELLITUS
     Dosage: 4 IU, QD
     Route: 058

REACTIONS (2)
  - ANGIOGRAM [None]
  - STENT PLACEMENT [None]
